FAERS Safety Report 23079875 (Version 1)
Quarter: 2023Q4

REPORT INFORMATION
  Report Type: Spontaneous
  Country: US (occurrence: US)
  Receive Date: 20231018
  Receipt Date: 20231018
  Transmission Date: 20240110
  Serious: No
  Sender: FDA-Public Use
  Company Number: US-La Jolla Pharmaceutical Company-2023TP000007

PATIENT

DRUGS (1)
  1. XERAVA [Suspect]
     Active Substance: ERAVACYCLINE DIHYDROCHLORIDE
     Indication: Product used for unknown indication
     Route: 042

REACTIONS (1)
  - Lipase increased [Unknown]
